FAERS Safety Report 14995243 (Version 1)
Quarter: 2018Q2

REPORT INFORMATION
  Report Type: Spontaneous
  Country: US (occurrence: US)
  Receive Date: 20180521
  Receipt Date: 20180521
  Transmission Date: 20180711
  Serious: Yes (Death)
  Sender: FDA-Public Use
  Company Number: None

PATIENT
  Age: 15 Year
  Sex: Male
  Weight: 121.5 kg

DRUGS (3)
  1. ZOLOFT (GENERIC FORM) [Suspect]
     Active Substance: SERTRALINE HYDROCHLORIDE
     Indication: DEPRESSION
     Dosage: ?          QUANTITY:1.5 DF DOSAGE FORM;?
     Route: 048
     Dates: start: 20170620, end: 20180409
  2. GENERAL MULTI-VITAMIN [Concomitant]
  3. METFORMIN [Concomitant]
     Active Substance: METFORMIN HYDROCHLORIDE

REACTIONS (6)
  - Suicide attempt [None]
  - Suicidal ideation [None]
  - Gun shot wound [None]
  - Completed suicide [None]
  - Therapy change [None]
  - Laceration [None]
